FAERS Safety Report 16609340 (Version 1)
Quarter: 2019Q3

REPORT INFORMATION
  Report Type: Report from Study
  Country: US (occurrence: US)
  Receive Date: 20190722
  Receipt Date: 20190722
  Transmission Date: 20191004
  Serious: Yes (Hospitalization)
  Sender: FDA-Public Use
  Company Number: US-BRISTOL-MYERS SQUIBB COMPANY-BMS-2019-071856

PATIENT
  Age: 45 Year
  Sex: Male
  Weight: 105.3 kg

DRUGS (2)
  1. METFORMIN HYDROCHLORIDE. [Suspect]
     Active Substance: METFORMIN HYDROCHLORIDE
     Indication: COLON CANCER
     Dosage: 1000 MILLIGRAM, BID
     Route: 048
     Dates: start: 20190412
  2. NIVOLUMAB [Suspect]
     Active Substance: NIVOLUMAB
     Indication: COLON CANCER
     Dosage: 480 MILLIGRAM, QMO
     Route: 042
     Dates: start: 20190429

REACTIONS (3)
  - Gastrointestinal wall thickening [Recovering/Resolving]
  - Abdominal hernia [Recovering/Resolving]
  - Pouchitis [Recovering/Resolving]

NARRATIVE: CASE EVENT DATE: 20190630
